FAERS Safety Report 13627313 (Version 1)
Quarter: 2017Q2

REPORT INFORMATION
  Report Type: Spontaneous
  Country: US (occurrence: US)
  Receive Date: 20170607
  Receipt Date: 20170607
  Transmission Date: 20170830
  Serious: No
  Sender: FDA-Public Use
  Company Number: None

PATIENT
  Age: 45 Year
  Sex: Female
  Weight: 65.7 kg

DRUGS (1)
  1. HUMIRA [Suspect]
     Active Substance: ADALIMUMAB
     Indication: CROHN^S DISEASE
     Dosage: ?          OTHER FREQUENCY:QOW;?
     Route: 058
     Dates: start: 20170505, end: 20170505

REACTIONS (8)
  - Musculoskeletal stiffness [None]
  - Dizziness [None]
  - Pain in extremity [None]
  - Device malfunction [None]
  - Panic reaction [None]
  - Dyspnoea [None]
  - Movement disorder [None]
  - Wrong technique in device usage process [None]

NARRATIVE: CASE EVENT DATE: 20170505
